FAERS Safety Report 13645708 (Version 1)
Quarter: 2017Q2

REPORT INFORMATION
  Report Type: Spontaneous
  Country: US (occurrence: US)
  Receive Date: 20170613
  Receipt Date: 20170613
  Transmission Date: 20170830
  Serious: No
  Sender: FDA-Public Use
  Company Number: US-BRISTOL-MYERS SQUIBB COMPANY-BMS-2017-051347

PATIENT
  Age: 91 Year

DRUGS (1)
  1. AZACTAM [Suspect]
     Active Substance: AZTREONAM
     Indication: CELLULITIS
     Dosage: 1 G, UNK
     Route: 042
     Dates: start: 20170603

REACTIONS (1)
  - Expired product administered [Unknown]
